FAERS Safety Report 24015735 (Version 1)
Quarter: 2024Q2

REPORT INFORMATION
  Report Type: Spontaneous
  Country: CA (occurrence: CA)
  Receive Date: 20240626
  Receipt Date: 20240626
  Transmission Date: 20240716
  Serious: Yes (Hospitalization, Other)
  Sender: FDA-Public Use
  Company Number: CA-SANDOZ-SDZ2024CA060591

PATIENT
  Age: 37 Year
  Sex: Female

DRUGS (7)
  1. ADALIMUMAB [Suspect]
     Active Substance: ADALIMUMAB\ISOPROPYL ALCOHOL
     Indication: Retinal vasculitis
     Dosage: 40 MG
     Route: 058
  2. AZATHIOPRINE [Concomitant]
     Active Substance: AZATHIOPRINE
     Indication: Product used for unknown indication
     Dosage: 125 MG, EVERY 1 DAYS
     Route: 065
  3. PREDNISONE [Concomitant]
     Active Substance: PREDNISONE
     Dosage: 50 MG, QD
     Route: 065
  4. PREDNISONE [Concomitant]
     Active Substance: PREDNISONE
     Indication: Product used for unknown indication
     Dosage: 60 MG, EVERY 1 DAYS
     Route: 065
  5. RUXIENCE [Concomitant]
     Active Substance: RITUXIMAB-PVVR
     Dosage: 1 DF
     Route: 042
  6. RUXIENCE [Concomitant]
     Active Substance: RITUXIMAB-PVVR
     Dosage: 1 DF
     Route: 042
  7. RUXIENCE [Concomitant]
     Active Substance: RITUXIMAB-PVVR
     Indication: Granulomatosis with polyangiitis
     Dosage: 675 MG
     Route: 042

REACTIONS (4)
  - Infusion related reaction [Unknown]
  - Anaphylactic reaction [Unknown]
  - Drug ineffective for unapproved indication [Unknown]
  - Off label use [Unknown]
